FAERS Safety Report 8461504-8 (Version None)
Quarter: 2012Q2

REPORT INFORMATION
  Report Type: 
  Country: None (occurrence: None)
  Receive Date: 20120625
  Receipt Date: 20120622
  Transmission Date: 20120825
  Serious: No
  Sender: FDA-Public Use
  Company Number: US-PFIZER INC-2012151071

PATIENT
  Sex: Female
  Weight: 38.549 kg

DRUGS (3)
  1. ZOLOFT [Suspect]
     Indication: DEPRESSION
     Dosage: 50 MG, 2X/DAY
     Route: 048
     Dates: start: 19970101, end: 19980101
  2. THEOPHYLLINE [Concomitant]
     Indication: ASTHMA
     Dosage: UNK
  3. ZOLOFT [Suspect]
     Dosage: 100 MG, 2X/DAY
     Route: 048
     Dates: start: 19980101

REACTIONS (3)
  - DRUG INEFFECTIVE [None]
  - ANXIETY [None]
  - FEELING ABNORMAL [None]
